FAERS Safety Report 16432081 (Version 1)
Quarter: 2019Q2

REPORT INFORMATION
  Report Type: Other
  Country: ES (occurrence: ES)
  Receive Date: 20190614
  Receipt Date: 20190614
  Transmission Date: 20190711
  Serious: Yes (Other)
  Sender: FDA-Public Use
  Company Number: ES-APOTEX-2019AP016154

PATIENT
  Age: 6 Month
  Sex: Male
  Weight: 7.52 kg

DRUGS (2)
  1. CUTIVATE [Concomitant]
     Active Substance: FLUTICASONE PROPIONATE
     Indication: PRODUCT USED FOR UNKNOWN INDICATION
     Dosage: 1 %, QD
     Route: 061
     Dates: start: 20190225, end: 20190303
  2. OMEPRAZOLE. [Suspect]
     Active Substance: OMEPRAZOLE
     Indication: GASTROOESOPHAGEAL REFLUX DISEASE
     Dosage: 2.8 ML, Q.12H
     Route: 048
     Dates: start: 20190107, end: 20190425

REACTIONS (1)
  - Hypertrichosis [Recovering/Resolving]

NARRATIVE: CASE EVENT DATE: 20190414
